FAERS Safety Report 19464280 (Version 8)
Quarter: 2021Q3

REPORT INFORMATION
  Report Type: Spontaneous
  Country: US (occurrence: US)
  Receive Date: 20210626
  Receipt Date: 20210818
  Transmission Date: 20211014
  Serious: No
  Sender: FDA-Public Use
  Company Number: US-UNITED THERAPEUTICS-UNT-2021-009488

PATIENT
  Sex: Female
  Weight: 70.75 kg

DRUGS (7)
  1. OPSUMIT [Concomitant]
     Active Substance: MACITENTAN
     Indication: PULMONARY ARTERIAL HYPERTENSION
     Dosage: 10 MG, QD
     Route: 048
  2. XARELTO [Concomitant]
     Active Substance: RIVAROXABAN
     Indication: PRODUCT USED FOR UNKNOWN INDICATION
     Dosage: UNK
     Route: 065
  3. REMODULIN [Suspect]
     Active Substance: TREPROSTINIL
     Dosage: 0.050 ?G/KG, CONTINUING
     Route: 058
     Dates: start: 2021
  4. SILDENAFIL CITRATE. [Concomitant]
     Active Substance: SILDENAFIL CITRATE
     Indication: PRODUCT USED FOR UNKNOWN INDICATION
     Dosage: UNK
     Route: 065
  5. REMODULIN [Suspect]
     Active Substance: TREPROSTINIL
     Indication: PULMONARY ARTERIAL HYPERTENSION
     Dosage: UNK, CONTINUING
     Route: 058
     Dates: start: 20181025
  6. REMODULIN [Suspect]
     Active Substance: TREPROSTINIL
     Dosage: UNK, CONTINUING
     Route: 058
  7. REMODULIN [Suspect]
     Active Substance: TREPROSTINIL
     Dosage: 0.062 ?G/KG, CONTINUING
     Route: 058
     Dates: start: 2021

REACTIONS (18)
  - Device dislocation [Unknown]
  - Scratch [Unknown]
  - Infusion site erythema [Not Recovered/Not Resolved]
  - Infusion site induration [Unknown]
  - Infusion site nerve damage [Unknown]
  - Anxiety [Unknown]
  - Infusion site swelling [Recovering/Resolving]
  - Accidental exposure to product [Unknown]
  - Erythema [Unknown]
  - Infusion site pain [Not Recovered/Not Resolved]
  - Infusion site injury [Unknown]
  - Infusion site haemorrhage [Unknown]
  - Infusion site pruritus [Unknown]
  - Device use error [Unknown]
  - Exposure via skin contact [Unknown]
  - Skin burning sensation [Recovered/Resolved]
  - Device adhesion issue [Unknown]
  - Infusion site nodule [Unknown]

NARRATIVE: CASE EVENT DATE: 2021
